FAERS Safety Report 15626384 (Version 1)
Quarter: 2018Q4

REPORT INFORMATION
  Report Type: Spontaneous
  Country: BE (occurrence: BE)
  Receive Date: 20181116
  Receipt Date: 20181116
  Transmission Date: 20190205
  Serious: Yes (Other)
  Sender: FDA-Public Use
  Company Number: BE-ALEMBIC PHARMACUETICALS LIMITED-2018SCAL000841

PATIENT

DRUGS (4)
  1. RASAGILINE. [Suspect]
     Active Substance: RASAGILINE
     Indication: PARKINSON^S DISEASE
     Dosage: 1 MILLIGRAM
  2. COCAINE [Suspect]
     Active Substance: COCAINE
     Indication: PRODUCT USED FOR UNKNOWN INDICATION
     Dosage: UNK
  3. PRAMIPEXOLE DIHYDROCHLORIDE. [Suspect]
     Active Substance: PRAMIPEXOLE DIHYDROCHLORIDE
     Indication: PARKINSON^S DISEASE
     Dosage: 1.5 MILLIGRAM
  4. LEVODOPA [Suspect]
     Active Substance: LEVODOPA
     Indication: PARKINSON^S DISEASE
     Dosage: 62.5 MILLIGRAM, TID

REACTIONS (9)
  - Paraphilia [Unknown]
  - Imprisonment [Unknown]
  - Homicide [Unknown]
  - Dyskinesia [Unknown]
  - Asphyxia [Unknown]
  - Impulse-control disorder [Unknown]
  - Physical assault [Unknown]
  - Sadism [Unknown]
  - Voyeurism [Unknown]
